FAERS Safety Report 9920410 (Version 1)
Quarter: 2014Q1

REPORT INFORMATION
  Report Type: Spontaneous
  Country: US (occurrence: US)
  Receive Date: 20140224
  Receipt Date: 20140224
  Transmission Date: 20141002
  Serious: No
  Sender: FDA-Public Use
  Company Number: US-NOVEN-13US008105

PATIENT
  Sex: Female

DRUGS (1)
  1. MINIVELLE [Suspect]
     Indication: HOT FLUSH
     Dosage: 0.1 MG, UNK
     Route: 062
     Dates: start: 2012

REACTIONS (2)
  - Hot flush [Not Recovered/Not Resolved]
  - Product packaging quantity issue [Unknown]
